FAERS Safety Report 8838450 (Version 7)
Quarter: 2016Q4

REPORT INFORMATION
  Report Type: Spontaneous
  Country: US (occurrence: US)
  Receive Date: 20121012
  Receipt Date: 20161122
  Transmission Date: 20170207
  Serious: Yes (Hospitalization, Other)
  Sender: FDA-Public Use
  Company Number: US-009507513-0911USA01630

PATIENT
  Sex: Female
  Weight: 63.95 kg

DRUGS (4)
  1. FOSAMAX [Suspect]
     Active Substance: ALENDRONATE SODIUM
     Indication: BONE DISORDER
  2. CORTICOSTEROIDS (UNSPECIFIED) [Concomitant]
     Active Substance: UNSPECIFIED INGREDIENT
     Indication: PRODUCT USED FOR UNKNOWN INDICATION
     Dosage: UNK UNK, UNKNOWN
     Route: 065
     Dates: start: 1977
  3. FOSAMAX [Suspect]
     Active Substance: ALENDRONATE SODIUM
     Indication: OSTEOPOROSIS PROPHYLAXIS
     Dosage: 70 MG, UNKNOWN
     Route: 048
     Dates: start: 2000, end: 200808
  4. FOSAMAX PLUS D [Suspect]
     Active Substance: ALENDRONATE SODIUM\CHOLECALCIFEROL
     Indication: OSTEOPOROSIS
     Dosage: 70 MG, 2800 IU UNK
     Route: 048
     Dates: end: 200805

REACTIONS (49)
  - Medical device removal [Unknown]
  - Foot fracture [Recovered/Resolved]
  - Foot fracture [Unknown]
  - Foot fracture [Unknown]
  - Synovectomy [Unknown]
  - Fatigue [Unknown]
  - Post procedural infection [Unknown]
  - Foreign body [Unknown]
  - Gastrooesophageal reflux disease [Unknown]
  - Arthritis [Unknown]
  - Tendonitis [Unknown]
  - Osteonecrosis [Unknown]
  - Fibula fracture [Unknown]
  - Knee operation [Unknown]
  - Device related sepsis [Unknown]
  - Foot fracture [Unknown]
  - Heart rate increased [Unknown]
  - Femur fracture [Recovered/Resolved]
  - Device failure [Unknown]
  - Skin disorder [Unknown]
  - Pain in extremity [Unknown]
  - Femur fracture [Unknown]
  - Hypothyroidism [Unknown]
  - Myeloproliferative neoplasm [Unknown]
  - Postoperative wound infection [Unknown]
  - Intervertebral disc degeneration [Unknown]
  - Open reduction of fracture [Unknown]
  - Impaired healing [Unknown]
  - Anaemia [Unknown]
  - Fracture nonunion [Unknown]
  - Exostosis [Unknown]
  - Lower limb fracture [Recovered/Resolved]
  - Foot fracture [Unknown]
  - Fracture delayed union [Unknown]
  - Fracture delayed union [Unknown]
  - Postoperative wound infection [Unknown]
  - Rib fracture [Unknown]
  - Joint swelling [Unknown]
  - Tibia fracture [Unknown]
  - Type 2 diabetes mellitus [Not Recovered/Not Resolved]
  - Medical device removal [Unknown]
  - Pain in extremity [Unknown]
  - Tibia fracture [Unknown]
  - Cellulitis [Unknown]
  - Foot fracture [Not Recovered/Not Resolved]
  - Fracture delayed union [Unknown]
  - Infection [Unknown]
  - Peripheral swelling [Unknown]
  - Arthropathy [Unknown]

NARRATIVE: CASE EVENT DATE: 2001
